FAERS Safety Report 7122608-5 (Version None)
Quarter: 2010Q4

REPORT INFORMATION
  Report Type: 
  Country: None (occurrence: None)
  Receive Date: 20101124
  Receipt Date: 20101118
  Transmission Date: 20110411
  Serious: Yes (Other)
  Sender: FDA-Public Use
  Company Number: US-ALLERGAN-1014983US

PATIENT
  Age: 33 Year
  Sex: Male

DRUGS (1)
  1. REFRESH PLUS [Suspect]
     Indication: DRY EYE
     Dosage: USED TWICE IN THE LEFT EYE AND USED 4-5 TIMES IN THE RIGHT EYE
     Route: 047
     Dates: start: 20101116, end: 20101117

REACTIONS (3)
  - PAIN [None]
  - ULCERATIVE KERATITIS [None]
  - VISION BLURRED [None]
